FAERS Safety Report 17820853 (Version 1)
Quarter: 2020Q2

REPORT INFORMATION
  Report Type: Spontaneous
  Country: JP (occurrence: JP)
  Receive Date: 20200525
  Receipt Date: 20200525
  Transmission Date: 20200714
  Serious: Yes (Other)
  Sender: FDA-Public Use
  Company Number: JP-PFIZER INC-2020200617

PATIENT
  Age: 96 Year
  Sex: Female

DRUGS (1)
  1. MINIPRESS [Suspect]
     Active Substance: PRAZOSIN HYDROCHLORIDE
     Dosage: 1 DF (AFTER BREAKFAST)
     Route: 048
     Dates: start: 20200520

REACTIONS (4)
  - Blood pressure decreased [Unknown]
  - Loss of consciousness [Unknown]
  - Syncope [Unknown]
  - Cardio-respiratory arrest [Unknown]

NARRATIVE: CASE EVENT DATE: 20200520
